FAERS Safety Report 4423936-4 (Version None)
Quarter: 2004Q3

REPORT INFORMATION
  Report Type: 
  Country: None (occurrence: None)
  Receive Date: 20040805
  Receipt Date: 20040726
  Transmission Date: 20050211
  Serious: Yes (Hospitalization)
  Sender: FDA-Public Use
  Company Number: 2004225579GB

PATIENT
  Age: 63 Year
  Sex: Female

DRUGS (5)
  1. SULFASALAZINE [Suspect]
     Indication: RHEUMATOID ARTHRITIS
     Dosage: ORAL
     Route: 048
     Dates: start: 20040613, end: 20040708
  2. CO-AMLOFRUSE [Concomitant]
  3. THYROXIN (LEVOTHYROXINE SODUUM) [Concomitant]
  4. BECLAZONE (BECLOMETASONE DIPROPIONATE) [Concomitant]
  5. SALBUTAMOL (SALBUTAMOL) [Concomitant]

REACTIONS (7)
  - DIARRHOEA [None]
  - LIVER FUNCTION TEST ABNORMAL [None]
  - NAUSEA [None]
  - PHARYNGOLARYNGEAL PAIN [None]
  - RASH GENERALISED [None]
  - RASH PAPULAR [None]
  - RASH PRURITIC [None]
